FAERS Safety Report 17520650 (Version 12)
Quarter: 2023Q4

REPORT INFORMATION
  Report Type: Spontaneous
  Country: US (occurrence: US)
  Receive Date: 20200310
  Receipt Date: 20231020
  Transmission Date: 20240109
  Serious: No
  Sender: FDA-Public Use
  Company Number: US-PFIZER INC-2020104129

PATIENT
  Age: 59 Year
  Sex: Female

DRUGS (8)
  1. XELJANZ XR [Suspect]
     Active Substance: TOFACITINIB CITRATE
     Indication: Rheumatoid arthritis
     Dosage: 11 MG, 1X/DAY
     Route: 048
     Dates: start: 2018
  2. XELJANZ XR [Suspect]
     Active Substance: TOFACITINIB CITRATE
     Dosage: 11 MG, 1X/DAY
     Route: 048
     Dates: start: 202002
  3. RINVOQ [Concomitant]
     Active Substance: UPADACITINIB
     Dosage: UNK
  4. METHOTREXATE [Concomitant]
     Active Substance: METHOTREXATE
  5. OLMESARTAN [Concomitant]
     Active Substance: OLMESARTAN
  6. FOLIC ACID [Concomitant]
     Active Substance: FOLIC ACID
  7. CALCIUM [Concomitant]
     Active Substance: CALCIUM
  8. HYDRALAZINE [Concomitant]
     Active Substance: HYDRALAZINE HYDROCHLORIDE

REACTIONS (12)
  - Therapeutic product effect incomplete [Unknown]
  - Product dose omission in error [Unknown]
  - Chest pain [Unknown]
  - Chest discomfort [Unknown]
  - Illness [Not Recovered/Not Resolved]
  - Headache [Unknown]
  - Coronavirus infection [Unknown]
  - Arthropathy [Unknown]
  - Muscle spasms [Unknown]
  - Confusional state [Unknown]
  - Pain in extremity [Unknown]
  - Vulvovaginal mycotic infection [Recovered/Resolved]

NARRATIVE: CASE EVENT DATE: 20200101
